FAERS Safety Report 19458118 (Version 2)
Quarter: 2021Q3

REPORT INFORMATION
  Report Type: Spontaneous
  Country: JP (occurrence: JP)
  Receive Date: 20210624
  Receipt Date: 20210716
  Transmission Date: 20211014
  Serious: Yes (Other)
  Sender: FDA-Public Use
  Company Number: JP-ASTRAZENECA-2021A545747

PATIENT
  Age: 69 Year
  Sex: Male

DRUGS (8)
  1. IMFINZI [Suspect]
     Active Substance: DURVALUMAB
     Indication: SMALL CELL LUNG CANCER
     Route: 041
  2. ETOPOSIDE. [Concomitant]
     Active Substance: ETOPOSIDE
     Indication: SMALL CELL LUNG CANCER
     Dosage: DOSE UNKNOWN, ON DAY 1, 2, AND 3 OF EACH CYCLE
     Route: 065
  3. CARBOPLATIN. [Suspect]
     Active Substance: CARBOPLATIN
     Indication: SMALL CELL LUNG CANCER
     Dosage: DOSE UNKNOWN
     Route: 065
  4. AMLODIPINE BESILATE [Concomitant]
     Active Substance: AMLODIPINE BESYLATE
     Dosage: DOSE UNKNOWN
     Route: 065
  5. NITROPEN [Concomitant]
     Active Substance: NITROGLYCERIN
     Dosage: DOSE UNKNOWN
     Route: 060
  6. IMFINZI [Suspect]
     Active Substance: DURVALUMAB
     Indication: SMALL CELL LUNG CANCER
     Route: 041
  7. FEBUXOSTAT. [Concomitant]
     Active Substance: FEBUXOSTAT
     Dosage: DOSE UNKNOWN
     Route: 048
  8. ISOSORBIDE. [Concomitant]
     Active Substance: ISOSORBIDE
     Route: 048

REACTIONS (8)
  - Diplopia [Unknown]
  - Localised oedema [Unknown]
  - Malaise [Unknown]
  - White blood cell count decreased [Recovered/Resolved]
  - Muscular weakness [Unknown]
  - Face oedema [Unknown]
  - Dysphonia [Unknown]
  - Weight decreased [Unknown]
